FAERS Safety Report 6844117-0 (Version None)
Quarter: 2010Q3

REPORT INFORMATION
  Report Type: 
  Country: None (occurrence: None)
  Receive Date: 20100715
  Receipt Date: 20100624
  Transmission Date: 20110219
  Serious: Yes (Hospitalization)
  Sender: FDA-Public Use
  Company Number: A0787966A

PATIENT
  Age: 59 Year
  Sex: Male
  Weight: 129.5 kg

DRUGS (9)
  1. AVANDIA [Suspect]
     Indication: DIABETES MELLITUS
     Dosage: 8MG PER DAY
     Route: 048
     Dates: start: 20060724, end: 20070525
  2. TRIAMTERENE AND HYDROCHLOROTHIAZIDE [Concomitant]
  3. FELODIPINE [Concomitant]
  4. LISINOPRIL [Concomitant]
  5. LOVASTATIN [Concomitant]
  6. GEMFIBROZIL [Concomitant]
  7. GLIPIZIDE [Concomitant]
  8. ZETIA [Concomitant]
  9. ACTOS [Concomitant]
     Dates: start: 20070525

REACTIONS (5)
  - ANGINA UNSTABLE [None]
  - ARTERIOSCLEROSIS CORONARY ARTERY [None]
  - CARDIAC FAILURE CONGESTIVE [None]
  - CARDIOMYOPATHY [None]
  - CARDIOVASCULAR DISORDER [None]
